FAERS Safety Report 5999447-1 (Version None)
Quarter: 2008Q4

REPORT INFORMATION
  Report Type: 
  Country: None (occurrence: None)
  Receive Date: 20081215
  Receipt Date: 20081112
  Transmission Date: 20090506
  Serious: No
  Sender: FDA-Public Use
  Company Number: US-BAYER-200838351NA

PATIENT
  Age: 57 Year
  Sex: Female

DRUGS (2)
  1. AVELOX [Suspect]
     Indication: RESPIRATORY TRACT INFECTION
     Dates: end: 20081102
  2. PREDNISONE TAB [Concomitant]
     Indication: RESPIRATORY TRACT INFECTION
     Dates: end: 20081103

REACTIONS (4)
  - HYPOAESTHESIA [None]
  - PAIN [None]
  - PAIN IN EXTREMITY [None]
  - PARAESTHESIA [None]
